FAERS Safety Report 16870058 (Version 1)
Quarter: 2019Q3

REPORT INFORMATION
  Report Type: Report from Study
  Country: IT (occurrence: IT)
  Receive Date: 20190930
  Receipt Date: 20190930
  Transmission Date: 20191005
  Serious: Yes (Hospitalization)
  Sender: FDA-Public Use
  Company Number: IT-MYLANLABS-2019M1091065

PATIENT
  Age: 46 Year
  Sex: Female

DRUGS (2)
  1. FRONTAL 0,75 MG/ML GOCCE ORALI, SOLUZIONE [Suspect]
     Active Substance: ALPRAZOLAM
     Indication: ANXIETY
     Dosage: 10 MILLILITER, TOTAL
     Route: 048
     Dates: start: 20181011, end: 20181011
  2. ALCOVER [Suspect]
     Active Substance: SODIUM OXYBATE
     Indication: ALCOHOLISM
     Dosage: UNK
     Dates: start: 20181011, end: 20181011

REACTIONS (4)
  - Sluggishness [Recovered/Resolved]
  - Intentional product misuse [Unknown]
  - Drug abuse [Recovered/Resolved]
  - Stereotypy [Recovered/Resolved]

NARRATIVE: CASE EVENT DATE: 20181011
